FAERS Safety Report 8589976-9 (Version None)
Quarter: 2012Q3

REPORT INFORMATION
  Report Type: 
  Country: None (occurrence: None)
  Receive Date: 20120813
  Receipt Date: 20120806
  Transmission Date: 20120928
  Serious: Yes (Death, Hospitalization, Other)
  Sender: FDA-Public Use
  Company Number: GB-CELGENEUS-167-21880-12080733

PATIENT
  Age: 72 Year
  Sex: Female
  Weight: 72 kg

DRUGS (18)
  1. DOXAZOSIN MESYLATE [Concomitant]
     Route: 065
  2. LACTULOSE [Concomitant]
     Route: 065
  3. THALIDOMIDE [Suspect]
  4. DEXAMETHASONE [Concomitant]
     Indication: MULTIPLE MYELOMA
     Route: 065
     Dates: start: 20091201
  5. DOCUSATE [Concomitant]
     Route: 065
  6. DULOXETIME HYDROCHLORIDE [Concomitant]
     Route: 065
  7. SENNA [Concomitant]
     Route: 065
  8. ZOLEDRONIC ACID [Concomitant]
     Route: 065
     Dates: start: 20111101
  9. REVLIMID [Suspect]
     Indication: MULTIPLE MYELOMA
     Dosage: 25 MILLIGRAM
     Route: 048
     Dates: start: 20091223, end: 20120405
  10. FUROSEMIDE [Concomitant]
     Route: 065
  11. LANSOPRAZOLE [Concomitant]
     Route: 065
  12. LEVOTHYROXINE SODIUM [Concomitant]
     Route: 065
  13. SANDO-K [Concomitant]
     Route: 065
  14. CYCLOPHOSPHAMIDE [Concomitant]
     Indication: MULTIPLE MYELOMA
     Route: 065
  15. ADCAL-D3 [Concomitant]
     Route: 065
  16. CODEINE PHOSPHATE [Concomitant]
     Route: 065
  17. FENTANYL [Concomitant]
     Route: 065
  18. GAVISCON [Concomitant]
     Route: 065

REACTIONS (9)
  - PAIN [None]
  - COLON CANCER METASTATIC [None]
  - DYSPNOEA [None]
  - ANAEMIA [None]
  - LOWER RESPIRATORY TRACT INFECTION [None]
  - LIVER FUNCTION TEST ABNORMAL [None]
  - URINARY TRACT INFECTION [None]
  - CARDIAC DISORDER [None]
  - RECTAL HAEMORRHAGE [None]
